FAERS Safety Report 19658032 (Version 3)
Quarter: 2022Q2

REPORT INFORMATION
  Report Type: Report from Study
  Country: ES (occurrence: ES)
  Receive Date: 20210804
  Receipt Date: 20220407
  Transmission Date: 20220720
  Serious: Yes (Hospitalization)
  Sender: FDA-Public Use
  Company Number: ES-JNJFOC-20210753628

PATIENT
  Age: 78 Year
  Sex: Male
  Weight: 70.4 kg

DRUGS (17)
  1. AMIVANTAMAB [Suspect]
     Active Substance: AMIVANTAMAB
     Indication: Non-small cell lung cancer
     Dosage: MOST RECENT DOSE ON 15-JUL-2021, 250ML
     Route: 058
     Dates: start: 20210624
  2. ESOMEPRAZOLE [Concomitant]
     Active Substance: ESOMEPRAZOLE
     Indication: Gastrointestinal disorder therapy
     Route: 048
     Dates: start: 20110101
  3. METAMIZOLE [Concomitant]
     Active Substance: METAMIZOLE
     Indication: Back pain
     Route: 048
     Dates: start: 20210101
  4. VITAMIN D3 [Concomitant]
     Active Substance: CHOLECALCIFEROL
     Indication: Prophylaxis
     Route: 048
     Dates: start: 20210401
  5. DUTASTERIDE [Concomitant]
     Active Substance: DUTASTERIDE
     Indication: Benign prostatic hyperplasia
     Route: 048
     Dates: start: 20120101
  6. TAMSULOSIN [Concomitant]
     Active Substance: TAMSULOSIN
     Indication: Benign prostatic hyperplasia
     Route: 048
     Dates: start: 20120101
  7. POLYETHYLENE GLYCOLS [Concomitant]
     Active Substance: POLYETHYLENE GLYCOLS
     Indication: Constipation
     Route: 048
     Dates: start: 20210201
  8. ACETAMINOPHEN [Concomitant]
     Active Substance: ACETAMINOPHEN
     Indication: Back pain
     Route: 048
     Dates: start: 20210301
  9. LORAZEPAM [Concomitant]
     Active Substance: LORAZEPAM
     Indication: Insomnia
     Route: 048
     Dates: start: 20210301
  10. PREGABALIN [Concomitant]
     Active Substance: PREGABALIN
     Indication: Back pain
     Route: 048
     Dates: start: 20210401
  11. CALCIUM [Concomitant]
     Active Substance: CALCIUM
     Indication: Prophylaxis
     Route: 048
     Dates: start: 20210401
  12. OXYCODONE [Concomitant]
     Active Substance: OXYCODONE
     Indication: Back pain
     Route: 048
     Dates: start: 20210501
  13. FENTANYL [Concomitant]
     Active Substance: FENTANYL
     Indication: Back pain
     Route: 062
     Dates: start: 20210619
  14. NAPROXEN [Concomitant]
     Active Substance: NAPROXEN
     Indication: Back pain
     Route: 048
     Dates: start: 20210706
  15. FUROSEMIDE [Concomitant]
     Active Substance: FUROSEMIDE
     Indication: Oedema peripheral
     Route: 048
     Dates: start: 20210721, end: 20210724
  16. METRONIDAZOLE [Concomitant]
     Active Substance: METRONIDAZOLE
     Indication: Rash
     Route: 061
     Dates: start: 20210721
  17. DOXYCYCLINE [Concomitant]
     Active Substance: DOXYCYCLINE
     Indication: Skin ulcer
     Route: 048
     Dates: start: 20210721, end: 20210812

REACTIONS (1)
  - Oedema peripheral [Recovered/Resolved]

NARRATIVE: CASE EVENT DATE: 20210723
